FAERS Safety Report 13610399 (Version 1)
Quarter: 2017Q2

REPORT INFORMATION
  Report Type: Spontaneous
  Country: US (occurrence: US)
  Receive Date: 20170602
  Receipt Date: 20170602
  Transmission Date: 20170830
  Serious: No
  Sender: FDA-Public Use
  Company Number: None

PATIENT
  Age: 40 Year
  Sex: Male

DRUGS (1)
  1. HUMIRA [Suspect]
     Active Substance: ADALIMUMAB
     Indication: PRODUCT USED FOR UNKNOWN INDICATION
     Dosage: 80MG ON DAY 1, THEN ?40MG ON DAY 8,?40MG ON DAY 22??80MG ON DAY 1,THEN 40?MG ON DAY 8, FOLLOWED BY 40MG EVERY OTHERWEEK THEREAFTER???
     Route: 058
     Dates: start: 20170509

REACTIONS (2)
  - Hypersomnia [None]
  - Fatigue [None]

NARRATIVE: CASE EVENT DATE: 20170601
